FAERS Safety Report 5940746-7 (Version None)
Quarter: 2008Q4

REPORT INFORMATION
  Report Type: 
  Country: None (occurrence: None)
  Receive Date: 20081030
  Receipt Date: 20081021
  Transmission Date: 20090506
  Serious: Yes (Life-Threatening)
  Sender: FDA-Public Use
  Company Number: LTI2008A00282

PATIENT
  Age: 74 Year
  Sex: Male

DRUGS (5)
  1. ACTOS [Suspect]
     Indication: TYPE 2 DIABETES MELLITUS
     Dosage: 30 MG (30 MG, 1 IN 1 D) ORAL
     Route: 048
     Dates: start: 20071201, end: 20080129
  2. GLYBURIDE [Concomitant]
  3. GLUCOPHAGE [Concomitant]
  4. MEDIATOR (BENFLUOREX HYDROCHLORIDE) [Concomitant]
  5. ATORVASTATIN CALCIUM [Concomitant]

REACTIONS (4)
  - ATRIAL FIBRILLATION [None]
  - CARDIAC FAILURE [None]
  - FLUID RETENTION [None]
  - SODIUM RETENTION [None]
